FAERS Safety Report 7310210-1 (Version None)
Quarter: 2011Q1

REPORT INFORMATION
  Report Type: 
  Country: None (occurrence: None)
  Receive Date: 20110224
  Receipt Date: 20110217
  Transmission Date: 20110831
  Serious: No
  Sender: FDA-Public Use
  Company Number: US-PFIZER INC-2011035419

PATIENT
  Sex: Female

DRUGS (3)
  1. CLOMIFENE CITRATE [Concomitant]
     Dosage: UNK
     Dates: start: 20100101
  2. SYNAREL [Suspect]
     Dosage: UNK
     Route: 065
  3. LUPRON [Suspect]
     Dosage: UNK
     Route: 065

REACTIONS (1)
  - MALAISE [None]
